FAERS Safety Report 7244341-1 (Version None)
Quarter: 2011Q1

REPORT INFORMATION
  Report Type: 
  Country: None (occurrence: None)
  Receive Date: 20110125
  Receipt Date: 20101223
  Transmission Date: 20110831
  Serious: Yes (Other)
  Sender: FDA-Public Use
  Company Number: US-AMGEN-USASP2010005451

PATIENT
  Age: 59 Year
  Sex: Female
  Weight: 43.084 kg

DRUGS (3)
  1. TOPROL-XL [Concomitant]
  2. PROLIA [Suspect]
     Indication: OSTEOPOROSIS POSTMENOPAUSAL
     Dosage: 60 MG, Q6MO
     Dates: start: 20101028
  3. ZOLOFT [Concomitant]

REACTIONS (2)
  - TOOTH FRACTURE [None]
  - TOOTHACHE [None]
